FAERS Safety Report 9491715 (Version 1)
Quarter: 2013Q3

REPORT INFORMATION
  Report Type: Not Available
  Country: US (occurrence: US)
  Receive Date: 20130919
  Receipt Date: 20130919
  Transmission Date: 20140515
  Serious: Yes (Other)
  Sender: FDA-Public Use
  Company Number: US-LUNDBECK-DKLU1081423

PATIENT
  Age: 27 Year
  Sex: Female

DRUGS (9)
  1. SABRIL (TABLET) [Suspect]
     Indication: TEMPORAL LOBE EPILEPSY
     Route: 048
     Dates: start: 201205
  2. SABRIL (TABLET) [Suspect]
     Route: 048
     Dates: start: 201205
  3. SABRIL (TABLET) [Suspect]
     Route: 048
     Dates: start: 201205
  4. SABRIL (TABLET) [Suspect]
     Route: 048
     Dates: start: 201205
  5. TEGRETOL [Concomitant]
     Indication: PRODUCT USED FOR UNKNOWN INDICATION
  6. LAMICTAL [Concomitant]
     Indication: PRODUCT USED FOR UNKNOWN INDICATION
  7. ATIVAN [Concomitant]
     Indication: CONVULSION
  8. KEPPRA [Concomitant]
     Indication: PRODUCT USED FOR UNKNOWN INDICATION
  9. FOLIC ACID [Concomitant]
     Indication: PRODUCT USED FOR UNKNOWN INDICATION

REACTIONS (1)
  - Gastrointestinal haemorrhage [Not Recovered/Not Resolved]
